FAERS Safety Report 8004895-4 (Version None)
Quarter: 2011Q4

REPORT INFORMATION
  Report Type: 
  Country: None (occurrence: None)
  Receive Date: 20111220
  Receipt Date: 20111206
  Transmission Date: 20120403
  Serious: Yes (Other)
  Sender: FDA-Public Use
  Company Number: 2011P1013959

PATIENT
  Sex: Male

DRUGS (2)
  1. AMMONUL [Suspect]
     Indication: HYPERAMMONAEMIA
     Dosage: 250 MG/KG;QD 300 MG/KG;QD
     Dates: end: 20110101
  2. AMMONUL [Suspect]
     Indication: HYPERAMMONAEMIA
     Dosage: 250 MG/KG;QD 300 MG/KG;QD
     Dates: end: 20110101

REACTIONS (1)
  - DEVICE RELATED SEPSIS [None]
